FAERS Safety Report 10441735 (Version 3)
Quarter: 2017Q4

REPORT INFORMATION
  Report Type: Spontaneous
  Country: US (occurrence: US)
  Receive Date: 20140908
  Receipt Date: 20171211
  Transmission Date: 20180320
  Serious: Yes (Hospitalization)
  Sender: FDA-Public Use
  Company Number: US-OTSUKA-US-2014-12857

PATIENT
  Sex: Male

DRUGS (3)
  1. OPC-14597 [Suspect]
     Active Substance: CILOSTAZOL
     Route: 065
  2. ABILIFY [Suspect]
     Active Substance: ARIPIPRAZOLE
     Indication: PRODUCT USED FOR UNKNOWN INDICATION
     Dosage: UNK
     Route: 065
  3. ABILIFY MAINTENA [Suspect]
     Active Substance: ARIPIPRAZOLE
     Dosage: UNK
     Route: 030

REACTIONS (2)
  - Psychiatric symptom [Unknown]
  - Psychotic disorder [Unknown]
